FAERS Safety Report 8305295-X (Version None)
Quarter: 2012Q2

REPORT INFORMATION
  Report Type: 
  Country: None (occurrence: None)
  Receive Date: 20120423
  Receipt Date: 20120413
  Transmission Date: 20120825
  Serious: Yes (Other)
  Sender: FDA-Public Use
  Company Number: US-ASTRAZENECA-2010SE59891

PATIENT
  Age: 52 Year
  Sex: Female

DRUGS (2)
  1. NEXIUM [Suspect]
     Route: 048
  2. PRILOSEC [Suspect]
     Route: 048

REACTIONS (7)
  - MALAISE [None]
  - NEUROPATHY PERIPHERAL [None]
  - POST-TRAUMATIC NECK SYNDROME [None]
  - NECK INJURY [None]
  - NECK PAIN [None]
  - ROAD TRAFFIC ACCIDENT [None]
  - NERVE ROOT COMPRESSION [None]
